FAERS Safety Report 10237738 (Version 5)
Quarter: 2015Q2

REPORT INFORMATION
  Report Type: Report from Study
  Country: CN (occurrence: CN)
  Receive Date: 20140616
  Receipt Date: 20150624
  Transmission Date: 20150821
  Serious: Yes (Death, Hospitalization, Other)
  Sender: FDA-Public Use
  Company Number: CN-BRISTOL-MYERS SQUIBB COMPANY-21000336

PATIENT
  Age: 46 Year
  Sex: Male

DRUGS (3)
  1. ETOPOSIDE. [Suspect]
     Active Substance: ETOPOSIDE
     Indication: SMALL CELL LUNG CANCER
     Dosage: 28APR2014
     Route: 042
     Dates: start: 20140310, end: 20140428
  2. CARBOPLATIN. [Suspect]
     Active Substance: CARBOPLATIN
     Indication: SMALL CELL LUNG CANCER
     Dosage: 640 MG: 10-MAR-2014; 660 MG: 03-APR-2014; 613 MG: 26-APR-2014
     Route: 042
     Dates: start: 20140310, end: 20140426
  3. IPILIMUMAB [Suspect]
     Active Substance: IPILIMUMAB
     Indication: SMALL CELL LUNG CANCER
     Dosage: 650 MG, QCYCLE
     Route: 042
     Dates: start: 20140428, end: 20140428

REACTIONS (2)
  - Drug-induced liver injury [Recovered/Resolved]
  - Malignant neoplasm progression [Fatal]

NARRATIVE: CASE EVENT DATE: 20140608
